FAERS Safety Report 4430171-2 (Version None)
Quarter: 2004Q3

REPORT INFORMATION
  Report Type: 
  Country: None (occurrence: None)
  Receive Date: 20040816
  Receipt Date: 20040729
  Transmission Date: 20050211
  Serious: Yes (Hospitalization)
  Sender: FDA-Public Use
  Company Number: 2004-FF-00463FF

PATIENT
  Age: 76 Year
  Sex: Male

DRUGS (7)
  1. PERSANTINE [Suspect]
     Dosage: 225 MG (75 MG) PO
     Route: 048
     Dates: start: 20040623
  2. FRAXIPARINE (NR) [Suspect]
     Dosage: 0.4 ML (0.4 ML) SC
     Route: 058
     Dates: start: 20040623
  3. BECOTIDE (BECLOMETASONE DIPROPIONATE) (NR) [Concomitant]
  4. TORENTAL (PENTOXIFYLLINE) (KAR) [Concomitant]
  5. FONZYLANE (BUFLOMEDIL HYDROCHLORIDE) (TA) [Concomitant]
  6. COMBIVENT (COMBIVENT) (NR) [Concomitant]
  7. SURBRONC (NR) [Concomitant]

REACTIONS (19)
  - ANAEMIA [None]
  - BLOOD CREATININE INCREASED [None]
  - BLOOD UREA DECREASED [None]
  - CIRRHOSIS ALCOHOLIC [None]
  - CREATINE PHOSPHOKINASE DECREASED [None]
  - DIZZINESS [None]
  - GASTRIC ULCER [None]
  - GASTRITIS [None]
  - GASTROINTESTINAL HAEMORRHAGE [None]
  - GASTROOESOPHAGEAL REFLUX DISEASE [None]
  - HAEMOGLOBIN INCREASED [None]
  - HELICOBACTER INFECTION [None]
  - HEPATITIS B [None]
  - HEPATOSPLENOMEGALY [None]
  - HIATUS HERNIA [None]
  - OESOPHAGITIS [None]
  - PLATELET COUNT DECREASED [None]
  - PORTAL HYPERTENSION [None]
  - THROMBOCYTOPENIA [None]
